FAERS Safety Report 7259605-5 (Version None)
Quarter: 2011Q1

REPORT INFORMATION
  Report Type: 
  Country: None (occurrence: None)
  Receive Date: 20110130
  Receipt Date: 20100901
  Transmission Date: 20110831
  Serious: Yes (Death, Hospitalization)
  Sender: FDA-Public Use
  Company Number: US-ABBOTT-10P-163-0626892-00

PATIENT
  Sex: Male
  Weight: 76.272 kg

DRUGS (2)
  1. HUMIRA [Suspect]
     Indication: PSORIATIC ARTHROPATHY
     Dosage: EVERY OFHTER WEEK
     Dates: start: 20070220, end: 20100201
  2. METHOTREXATE [Concomitant]
     Indication: PSORIATIC ARTHROPATHY

REACTIONS (2)
  - HISTOPLASMOSIS [None]
  - INTERSTITIAL LUNG DISEASE [None]
